FAERS Safety Report 18794756 (Version 1)
Quarter: 2021Q1

REPORT INFORMATION
  Report Type: Spontaneous
  Country: US (occurrence: US)
  Receive Date: 20210127
  Receipt Date: 20210127
  Transmission Date: 20210419
  Serious: Yes (Death, Life-Threatening, Other)
  Sender: FDA-Public Use
  Company Number: US-AMGEN-USASP2021012380

PATIENT

DRUGS (3)
  1. RITUXIMAB. [Suspect]
     Active Substance: RITUXIMAB
     Indication: NON-HODGKIN^S LYMPHOMA
     Dosage: UNK
     Route: 065
  2. CARFILZOMIB [Suspect]
     Active Substance: CARFILZOMIB
     Indication: NON-HODGKIN^S LYMPHOMA
     Dosage: UNK
     Route: 065
  3. BENDAMUSTINE [Suspect]
     Active Substance: BENDAMUSTINE
     Indication: NON-HODGKIN^S LYMPHOMA
     Dosage: UNK
     Route: 065

REACTIONS (32)
  - Febrile neutropenia [Unknown]
  - Vomiting [Unknown]
  - Pyrexia [Unknown]
  - Leukopenia [Unknown]
  - Neuropathy peripheral [Unknown]
  - Insomnia [Unknown]
  - Musculoskeletal pain [Unknown]
  - Diffuse large B-cell lymphoma [Fatal]
  - Nausea [Unknown]
  - Infection [Unknown]
  - Neutropenia [Unknown]
  - Acute kidney injury [Unknown]
  - Cerebrovascular accident [Unknown]
  - Off label use [Unknown]
  - Constipation [Unknown]
  - Cough [Unknown]
  - B-cell lymphoma [Unknown]
  - Therapy non-responder [Unknown]
  - Viral upper respiratory tract infection [Unknown]
  - Headache [Unknown]
  - Hypertension [Unknown]
  - Thrombocytopenia [Unknown]
  - Anaemia [Unknown]
  - Pleural effusion [Unknown]
  - Pneumonia [Unknown]
  - Fatigue [Unknown]
  - Abdominal pain [Unknown]
  - Diarrhoea [Unknown]
  - Hypoxia [Unknown]
  - Therapy partial responder [Unknown]
  - Sinusitis [Unknown]
  - Hyponatraemia [Unknown]
